FAERS Safety Report 13534357 (Version 5)
Quarter: 2019Q3

REPORT INFORMATION
  Report Type: Report from Study
  Country: CN (occurrence: CN)
  Receive Date: 20170510
  Receipt Date: 20190920
  Transmission Date: 20191004
  Serious: Yes (Hospitalization, Other)
  Sender: FDA-Public Use
  Company Number: PHHY2017CN052015

PATIENT
  Age: 39 Year
  Sex: Male
  Weight: 57.5 kg

DRUGS (69)
  1. MYFORTIC [Suspect]
     Active Substance: MYCOPHENOLATE SODIUM
     Dosage: 720 MG, BID
     Route: 048
     Dates: start: 20170404, end: 20170420
  2. AMLODIPIN/ATORVASTATIN [Concomitant]
     Active Substance: AMLODIPINE BESYLATE\ATORVASTATIN CALCIUM
     Dosage: 1 DF, BID
     Route: 048
     Dates: start: 20170328
  3. ENEMA (SODIUM PHOSPHATE, DIBASIC\SODIUM PHOSPHATE, MONOBASIC) [Concomitant]
     Active Substance: SODIUM PHOSPHATE, DIBASIC\SODIUM PHOSPHATE, MONOBASIC
     Indication: CONSTIPATION
     Dosage: 40 ML, PRN
     Route: 054
     Dates: start: 20170328, end: 20170328
  4. ENEMA (SODIUM PHOSPHATE, DIBASIC\SODIUM PHOSPHATE, MONOBASIC) [Concomitant]
     Active Substance: SODIUM PHOSPHATE, DIBASIC\SODIUM PHOSPHATE, MONOBASIC
     Dosage: 20 ML, BID
     Route: 054
     Dates: start: 20170329, end: 20170329
  5. GANCICLOVIR. [Concomitant]
     Active Substance: GANCICLOVIR
     Indication: ANTIVIRAL TREATMENT
     Dosage: 500 MG, TID
     Route: 048
     Dates: start: 20170410
  6. MANNITOL. [Concomitant]
     Active Substance: MANNITOL
     Indication: PROPHYLAXIS
     Dosage: 125 ML, PRN
     Route: 042
     Dates: start: 20170326, end: 20170326
  7. RECOMBINANT HUMAN ERYTHROPOIETIN [Concomitant]
     Active Substance: ERYTHROPOIETIN
     Indication: INFECTION
  8. TACROLIMUS. [Suspect]
     Active Substance: TACROLIMUS
     Dosage: 7 MG, QD
     Route: 065
     Dates: start: 20170401
  9. ALPRAZOLAM. [Concomitant]
     Active Substance: ALPRAZOLAM
     Indication: SEDATION
     Dosage: 0.4 MG, QD
     Route: 048
     Dates: start: 20170327, end: 20170410
  10. ANISODAMINE [Concomitant]
     Active Substance: ANISODAMINE
     Indication: CARDIOVASCULAR INSUFFICIENCY
     Dosage: 10 MG, PRN
     Route: 042
     Dates: start: 20170329, end: 20170329
  11. CLONIDINE. [Concomitant]
     Active Substance: CLONIDINE
     Dosage: 75 UG, PRN
     Route: 048
     Dates: start: 20170327, end: 20170327
  12. CLONIDINE. [Concomitant]
     Active Substance: CLONIDINE
     Dosage: UNK
     Route: 065
     Dates: start: 20170623
  13. METOPROLOL SUCCINATE. [Concomitant]
     Active Substance: METOPROLOL SUCCINATE
     Indication: HYPERTENSION
     Dosage: 47.5 MG, QD
     Dates: start: 20170327, end: 20170327
  14. NIFEDIPINE. [Concomitant]
     Active Substance: NIFEDIPINE
     Dosage: 10 MG, BID
     Route: 048
     Dates: start: 20170327, end: 20170327
  15. NIFEDIPINE. [Concomitant]
     Active Substance: NIFEDIPINE
     Dosage: 10 MG, PRN
     Route: 048
     Dates: start: 20170331, end: 20170331
  16. PIPERACILLIN/TAZOBACTAM [Concomitant]
     Active Substance: PIPERACILLIN SODIUM\TAZOBACTAM SODIUM
     Indication: INFECTION PROPHYLAXIS
     Dosage: 2500 MG, PRN
     Route: 042
     Dates: start: 20170326, end: 20170326
  17. SODIUM BICARBONATE. [Concomitant]
     Active Substance: SODIUM BICARBONATE
     Dosage: 250 ML, BID
     Route: 042
     Dates: start: 20170327, end: 20170327
  18. SODIUM PHOSPHATE [Concomitant]
     Active Substance: SODIUM PHOSPHATE
     Indication: ABDOMINAL DISCOMFORT
     Dosage: 133 ML, PRN
     Route: 054
     Dates: start: 20170326, end: 20170326
  19. MYFORTIC [Suspect]
     Active Substance: MYCOPHENOLATE SODIUM
     Dosage: 1080 MG, QD
     Route: 048
     Dates: start: 20170421, end: 20170616
  20. METHYLPREDNISOLONE. [Suspect]
     Active Substance: METHYLPREDNISOLONE
     Indication: IMMUNOSUPPRESSANT DRUG THERAPY
     Dosage: 700 MG, QD
     Route: 065
     Dates: start: 20170326, end: 20170326
  21. METOPROLOL. [Concomitant]
     Active Substance: METOPROLOL
     Indication: BLOOD PRESSURE ABNORMAL
     Dosage: 47.5 MG, BID
     Route: 048
     Dates: start: 20170328
  22. AMIKACIN. [Concomitant]
     Active Substance: AMIKACIN
     Indication: PROPHYLAXIS
     Dosage: 400 MG, PRN
     Route: 042
     Dates: start: 20170326, end: 20170326
  23. CALCIUM GLUCONATE. [Concomitant]
     Active Substance: CALCIUM GLUCONATE
     Indication: PROPHYLAXIS
     Dosage: 3000 MG, QD
     Route: 042
     Dates: start: 20170327, end: 20170328
  24. HUMAN-FIBRINOGEN [Concomitant]
     Active Substance: FIBRINOGEN HUMAN
     Indication: PRODUCT USED FOR UNKNOWN INDICATION
     Dosage: 1000 MG, QD
     Route: 042
     Dates: start: 20170405, end: 20170410
  25. MAGNESIUM SULFATE. [Concomitant]
     Active Substance: MAGNESIUM SULFATE
     Indication: ELECTROLYTE IMBALANCE
     Dosage: 3.2 ML, QD
     Route: 042
     Dates: start: 20170326, end: 20170327
  26. PIPERACILLIN/TAZOBACTAM [Concomitant]
     Active Substance: PIPERACILLIN SODIUM\TAZOBACTAM SODIUM
     Dosage: 4500 MG, QD
     Route: 042
     Dates: start: 20170327, end: 20170331
  27. MYFORTIC [Suspect]
     Active Substance: MYCOPHENOLATE SODIUM
     Indication: RENAL TRANSPLANT
     Dosage: 1440 MG, QD
     Route: 065
     Dates: start: 20170326, end: 20170326
  28. MYFORTIC [Suspect]
     Active Substance: MYCOPHENOLATE SODIUM
     Indication: PROPHYLAXIS AGAINST TRANSPLANT REJECTION
     Dosage: 1080 MG, BID
     Route: 048
     Dates: start: 20170327, end: 20170403
  29. SIMULECT [Suspect]
     Active Substance: BASILIXIMAB
     Indication: RENAL TRANSPLANT
     Dosage: 20 MG, QD
     Route: 065
     Dates: start: 20170326, end: 20170326
  30. METHYLPREDNISOLONE. [Suspect]
     Active Substance: METHYLPREDNISOLONE
     Dosage: 280 MG, QD
     Route: 065
     Dates: start: 20170329, end: 20170329
  31. METHYLPREDNISOLONE. [Suspect]
     Active Substance: METHYLPREDNISOLONE
     Dosage: 40 MG, QD
     Route: 065
     Dates: start: 20170330, end: 20170403
  32. CASPOFUNGIN ACETATE. [Concomitant]
     Active Substance: CASPOFUNGIN ACETATE
     Indication: INFECTION PROPHYLAXIS
     Dosage: 50 MG, QD
     Route: 042
     Dates: start: 20170326, end: 20170402
  33. DEXAMETHASONE. [Concomitant]
     Active Substance: DEXAMETHASONE
     Indication: PRODUCT USED FOR UNKNOWN INDICATION
     Dosage: 10 MG, PRN
     Route: 042
     Dates: start: 20170326, end: 20170326
  34. METOPROLOL SUCCINATE. [Concomitant]
     Active Substance: METOPROLOL SUCCINATE
     Dosage: 47.5 MG, BID
     Route: 048
     Dates: start: 20170328
  35. SODIUM BICARBONATE. [Concomitant]
     Active Substance: SODIUM BICARBONATE
     Indication: ELECTROLYTE IMBALANCE
     Dosage: 250 ML, PRN
     Route: 042
     Dates: start: 20170326, end: 20170326
  36. SODIUM BICARBONATE. [Concomitant]
     Active Substance: SODIUM BICARBONATE
     Indication: URINE ALKALINISATION THERAPY
     Dosage: 1000 MG, BID
     Route: 048
     Dates: start: 20170404
  37. TACROLIMUS. [Suspect]
     Active Substance: TACROLIMUS
     Indication: IMMUNOSUPPRESSANT DRUG THERAPY
     Dosage: 6 MG, QD
     Route: 065
     Dates: start: 20170327, end: 20170328
  38. TACROLIMUS. [Suspect]
     Active Substance: TACROLIMUS
     Dosage: 7 MG, QD
     Route: 065
     Dates: start: 20170329, end: 20170329
  39. PREDNISONE. [Suspect]
     Active Substance: PREDNISONE
     Indication: IMMUNOSUPPRESSANT DRUG THERAPY
     Dosage: 15 MG, QD
     Route: 065
     Dates: start: 20170410
  40. METHYLPREDNISOLONE. [Suspect]
     Active Substance: METHYLPREDNISOLONE
     Dosage: 580 MG, QD
     Route: 065
     Dates: start: 20170327, end: 20170328
  41. NORVASC [Concomitant]
     Active Substance: AMLODIPINE BESYLATE
     Indication: BLOOD PRESSURE ABNORMAL
     Dosage: 5 MG, BID
     Route: 048
     Dates: start: 20170324
  42. CLONIDINE. [Concomitant]
     Active Substance: CLONIDINE
     Dosage: 75 UG, TID
     Route: 048
     Dates: start: 20170329, end: 20170329
  43. HEPARIN SODIUM. [Concomitant]
     Active Substance: HEPARIN SODIUM
     Indication: PROPHYLAXIS
     Dosage: 12500 IU, W2D2
     Route: 042
     Dates: start: 20170328, end: 20170410
  44. HEPATITIS B IMMUNE GLOBULIN [Concomitant]
     Active Substance: HUMAN HEPATITIS B VIRUS IMMUNE GLOBULIN
     Indication: INFECTION PROPHYLAXIS
     Dosage: 400 IU, PRN
     Route: 030
     Dates: start: 20170327, end: 20170327
  45. LACTULOSE. [Concomitant]
     Active Substance: LACTULOSE
     Indication: CONSTIPATION
     Dosage: 15 ML, BID
     Route: 048
     Dates: start: 20170328, end: 20170329
  46. MAGNESIUM SULFATE. [Concomitant]
     Active Substance: MAGNESIUM SULFATE
     Dosage: 1.6 ML, PRN
     Route: 042
     Dates: start: 20170327, end: 20170327
  47. PLENDIL [Concomitant]
     Active Substance: FELODIPINE
  48. TACROLIMUS. [Suspect]
     Active Substance: TACROLIMUS
     Dosage: 8 MG, QD
     Route: 065
     Dates: start: 20170330, end: 20170331
  49. METHYLPREDNISOLONE. [Suspect]
     Active Substance: METHYLPREDNISOLONE
     Dosage: 20 MG, QD
     Route: 065
     Dates: start: 20170404, end: 20170410
  50. CLONIDINE. [Concomitant]
     Active Substance: CLONIDINE
     Dosage: 150 UG, TID
     Route: 048
     Dates: start: 20170330
  51. DIAZEPAM. [Concomitant]
     Active Substance: DIAZEPAM
     Indication: SEDATION
     Dosage: 5 MG, PRN
     Route: 048
     Dates: start: 20170326, end: 20170326
  52. NIFEDIPINE. [Concomitant]
     Active Substance: NIFEDIPINE
     Indication: HYPERTENSION
     Dosage: 10 MG, PRN
     Route: 048
     Dates: start: 20170326, end: 20170326
  53. NIFEDIPINE. [Concomitant]
     Active Substance: NIFEDIPINE
     Dosage: 10 MG, BID
     Route: 048
     Dates: start: 20170330, end: 20170330
  54. SIMULECT [Suspect]
     Active Substance: BASILIXIMAB
     Indication: PROPHYLAXIS AGAINST TRANSPLANT REJECTION
     Dosage: 20 MG, QD
     Route: 042
     Dates: start: 20170330, end: 20170330
  55. CLONIDINE. [Concomitant]
     Active Substance: CLONIDINE
     Indication: HYPERTENSION
     Dosage: 75 UG, BID
     Route: 048
     Dates: start: 20170326, end: 20170326
  56. DEXAMETHASONE. [Concomitant]
     Active Substance: DEXAMETHASONE
     Indication: PRODUCT USED FOR UNKNOWN INDICATION
     Dosage: 3 MG, PRN
     Route: 042
     Dates: start: 20170403, end: 20170403
  57. DEXAMETHASONE. [Concomitant]
     Active Substance: DEXAMETHASONE
     Indication: PROPHYLAXIS
  58. DILTIAZEM HYDROCHLORIDE. [Concomitant]
     Active Substance: DILTIAZEM HYDROCHLORIDE
     Indication: DRUG LEVEL DECREASED
     Dosage: 30 MG, BID
     Route: 048
     Dates: start: 20170327
  59. ESOMEPRAZOL [Concomitant]
     Active Substance: ESOMEPRAZOLE
     Indication: PROPHYLAXIS
     Dosage: 40 MG, QD
     Route: 042
     Dates: start: 20170317, end: 20170410
  60. NIFEDIPINE. [Concomitant]
     Active Substance: NIFEDIPINE
     Dosage: 10 MG, QID
     Route: 048
     Dates: start: 20170328, end: 20170328
  61. POTASSIUM CHLORIDE. [Concomitant]
     Active Substance: POTASSIUM CHLORIDE
     Indication: PROPHYLAXIS
     Dosage: 500 MG, TID
     Route: 048
     Dates: start: 20170407, end: 20170410
  62. RECOMBINANT HUMAN ERYTHROPOIETIN [Concomitant]
     Active Substance: ERYTHROPOIETIN
     Indication: PRODUCT USED FOR UNKNOWN INDICATION
     Dosage: 6000 IU, W3D
     Route: 042
     Dates: start: 20170403
  63. MYFORTIC [Suspect]
     Active Substance: MYCOPHENOLATE SODIUM
     Dosage: 360 MG, QD
     Route: 048
     Dates: start: 20170707
  64. ALPROSTADIL. [Concomitant]
     Active Substance: ALPROSTADIL
     Indication: CARDIOVASCULAR INSUFFICIENCY
     Dosage: 20 UG, QD
     Route: 042
     Dates: start: 20170327, end: 20170403
  65. AMLODIPIN/ATORVASTATIN [Concomitant]
     Active Substance: AMLODIPINE BESYLATE\ATORVASTATIN CALCIUM
     Indication: HYPERTENSION
     Dosage: 1 DF, QD
     Route: 048
     Dates: start: 20170327, end: 20170327
  66. AVELOX [Concomitant]
     Active Substance: MOXIFLOXACIN HYDROCHLORIDE
     Indication: INFECTION PROPHYLAXIS
     Dosage: 400 MG, QD
     Route: 042
     Dates: start: 20170331
  67. SULFAMETHOXAZOLE [Concomitant]
     Active Substance: SULFAMETHOXAZOLE
     Indication: INFECTION PROPHYLAXIS
     Dosage: 240 MG, QD
     Route: 048
     Dates: start: 20170410
  68. FUROSEMIDE. [Concomitant]
     Active Substance: FUROSEMIDE
     Indication: PROPHYLAXIS
     Dosage: 80 MG, PRN
     Route: 042
     Dates: start: 20170326, end: 20170326
  69. TALCID [Concomitant]
     Active Substance: HYDROTALCITE
     Indication: PROPHYLAXIS
     Dosage: 1000 MG, QD
     Route: 048
     Dates: start: 20170326

REACTIONS (13)
  - Leukopenia [Recovered/Resolved]
  - Blood urea increased [Unknown]
  - Overdose [Recovered/Resolved]
  - Lymphocyte count decreased [Unknown]
  - Constipation [Recovered/Resolved]
  - Haemoglobin decreased [Unknown]
  - Renal pain [Recovered/Resolved]
  - Blood albumin decreased [Unknown]
  - C-reactive protein increased [Unknown]
  - Procedural pain [Recovering/Resolving]
  - Anaemia [Recovered/Resolved]
  - Blood glucose increased [Unknown]
  - Renal haematoma [Recovered/Resolved]

NARRATIVE: CASE EVENT DATE: 20170326
